FAERS Safety Report 8332598-5 (Version None)
Quarter: 2012Q2

REPORT INFORMATION
  Report Type: 
  Country: None (occurrence: None)
  Receive Date: 20120503
  Receipt Date: 20120428
  Transmission Date: 20120825
  Serious: Yes (Hospitalization, Other)
  Sender: FDA-Public Use
  Company Number: US-BAYER-2011-036014

PATIENT
  Age: 16 Year
  Sex: Female
  Weight: 58.05 kg

DRUGS (2)
  1. DROSPIRENONE AND ETHINYL ESTRADIOL [Suspect]
     Indication: MENORRHAGIA
  2. DROSPIRENONE AND ETHINYL ESTRADIOL [Suspect]
     Indication: ACNE
     Dosage: UNK, QD
     Route: 048
     Dates: start: 20080101, end: 20090101

REACTIONS (7)
  - GALLBLADDER DISORDER [None]
  - ANXIETY [None]
  - ANHEDONIA [None]
  - GENERAL PHYSICAL HEALTH DETERIORATION [None]
  - CHOLECYSTITIS CHRONIC [None]
  - PAIN [None]
  - EMOTIONAL DISTRESS [None]
